FAERS Safety Report 11546567 (Version 1)
Quarter: 2015Q3

REPORT INFORMATION
  Report Type: Spontaneous
  Country: US (occurrence: US)
  Receive Date: 20150903
  Receipt Date: 20150903
  Transmission Date: 20151125
  Serious: No
  Sender: FDA-Public Use
  Company Number: US-ELI_LILLY_AND_COMPANY-US201201000271

PATIENT
  Age: 54 Year
  Sex: Female

DRUGS (6)
  1. HUMALOG MIX75/25 [Suspect]
     Active Substance: INSULIN LISPRO
     Dosage: 35 U, UNK
  2. HUMALOG MIX75/25 [Suspect]
     Active Substance: INSULIN LISPRO
     Dosage: UNK, BID
  3. METFORMIN [Concomitant]
     Active Substance: METFORMIN HYDROCHLORIDE
     Dosage: 2250 MG, UNK
  4. HUMALOG MIX75/25 [Suspect]
     Active Substance: INSULIN LISPRO
     Dosage: 25 U, UNK
  5. AMARYL [Concomitant]
     Active Substance: GLIMEPIRIDE
  6. LANTUS [Concomitant]
     Active Substance: INSULIN GLARGINE
     Dosage: 10 U, BID

REACTIONS (5)
  - Vision blurred [Unknown]
  - Blood glucose increased [Unknown]
  - Drug ineffective [Unknown]
  - Anxiety [Unknown]
  - Dizziness [Unknown]

NARRATIVE: CASE EVENT DATE: 201112
